FAERS Safety Report 4480201-7 (Version None)
Quarter: 2004Q4

REPORT INFORMATION
  Report Type: 
  Country: None (occurrence: None)
  Receive Date: 20041020
  Receipt Date: 20041011
  Transmission Date: 20050328
  Serious: Yes (Hospitalization)
  Sender: FDA-Public Use
  Company Number: CN-MERCK-0410CHN00020

PATIENT
  Age: 60 Year
  Sex: Female

DRUGS (2)
  1. VIOXX [Suspect]
     Indication: MUSCULOSKELETAL PAIN
     Route: 048
     Dates: start: 20020101, end: 20030101
  2. VIOXX [Suspect]
     Route: 048
     Dates: start: 20030101

REACTIONS (1)
  - RHEUMATIC HEART DISEASE [None]
